FAERS Safety Report 9259401 (Version 1)
Quarter: 2013Q2

REPORT INFORMATION
  Report Type: Spontaneous
  Country: US (occurrence: US)
  Receive Date: 20130427
  Receipt Date: 20130427
  Transmission Date: 20140414
  Serious: No
  Sender: FDA-Public Use
  Company Number: US-ASTRAZENECA-2013SE22799

PATIENT
  Age: 70 Year
  Sex: Female
  Weight: 73.9 kg

DRUGS (15)
  1. SYMBICORT [Suspect]
     Indication: BRONCHITIS CHRONIC
     Dosage: 160/4.5 MCG, 2 PUFFS, BID
     Route: 055
     Dates: start: 20130329
  2. OMEPRAZOLE [Suspect]
     Route: 048
  3. VENAFLEXINE [Concomitant]
     Dosage: 75MG
  4. LORAZEPAM [Concomitant]
     Dosage: PRN
  5. LOSARTAN [Concomitant]
  6. GABAPENTIN [Concomitant]
  7. FUROSEMIDE [Concomitant]
  8. ZAFIRLUKAST [Concomitant]
  9. ZETIA [Concomitant]
  10. CALCIUM [Concomitant]
  11. LAMOTRIGINE [Concomitant]
  12. ARANESP [Concomitant]
  13. AMLODIPINE [Concomitant]
  14. ASA [Concomitant]
  15. TYLENOL [Concomitant]
     Dosage: PRN

REACTIONS (2)
  - Fear [Unknown]
  - Nervousness [Unknown]
